FAERS Safety Report 10060979 (Version 1)
Quarter: 2014Q2

REPORT INFORMATION
  Report Type: Spontaneous
  Country: US (occurrence: US)
  Receive Date: 20140405
  Receipt Date: 20140405
  Transmission Date: 20141212
  Serious: Yes (Death)
  Sender: FDA-Public Use
  Company Number: US-ROCHE-1376901

PATIENT
  Age: 61 Year
  Sex: Female
  Weight: 76.27 kg

DRUGS (14)
  1. XELODA [Suspect]
     Indication: BREAST CANCER FEMALE
     Route: 048
     Dates: start: 20131226
  2. XELODA [Suspect]
     Indication: BONE CANCER
  3. AFINITOR [Concomitant]
  4. LANTUS [Concomitant]
  5. ADVAIR [Concomitant]
  6. VENLAFAXINE [Concomitant]
  7. CARAFATE [Concomitant]
  8. TOPROL [Concomitant]
  9. OMEPRAZOLE [Concomitant]
  10. EXEMESTANE [Concomitant]
  11. ALPRAZOLAM [Concomitant]
  12. LORTAB [Concomitant]
  13. FENTANYL [Concomitant]
  14. MAGNESIUM OXIDE [Concomitant]

REACTIONS (1)
  - Death [Fatal]
